FAERS Safety Report 6696356-X (Version None)
Quarter: 2010Q2

REPORT INFORMATION
  Report Type: 
  Country: None (occurrence: None)
  Receive Date: 20100426
  Receipt Date: 20100414
  Transmission Date: 20101027
  Serious: Yes (Other)
  Sender: FDA-Public Use
  Company Number: US-WYE-H14616010

PATIENT
  Sex: Male

DRUGS (12)
  1. EFFEXOR XR [Suspect]
     Indication: ANXIETY
     Dates: end: 20090101
  2. EFFEXOR XR [Suspect]
     Indication: DEPRESSION
  3. ALPRAZOLAM [Concomitant]
     Indication: ANXIETY
     Dosage: AS NEEDED
  4. ALTACE [Concomitant]
     Indication: HYPERTENSION
  5. ATENOLOL [Concomitant]
     Indication: TACHYCARDIA
  6. TRAMADOL HCL [Concomitant]
     Indication: PAIN
  7. OMEPRAZOLE [Concomitant]
     Indication: GASTROOESOPHAGEAL REFLUX DISEASE
  8. ASMANEX TWISTHALER [Concomitant]
     Indication: ASTHMA
  9. CRESTOR [Concomitant]
     Indication: BLOOD CHOLESTEROL INCREASED
  10. GABAPENTIN [Concomitant]
     Indication: PAIN
     Dosage: 600 MG AS NEEDED
  11. LEVOTHYROXINE [Concomitant]
     Indication: THYROID DISORDER
  12. FLOMAX [Concomitant]

REACTIONS (2)
  - NARCOLEPSY [None]
  - ROAD TRAFFIC ACCIDENT [None]
